FAERS Safety Report 5963877-4 (Version None)
Quarter: 2008Q4

REPORT INFORMATION
  Report Type: 
  Country: None (occurrence: None)
  Receive Date: 20081121
  Receipt Date: 20081121
  Transmission Date: 20090506
  Serious: Yes (Other)
  Sender: FDA-Public Use
  Company Number: None

PATIENT
  Sex: Female
  Weight: 75.2971 kg

DRUGS (1)
  1. WELLBUTRIN XL [Suspect]
     Indication: DEPRESSION
     Dosage: 300 MG ONCE QD PO
     Route: 048
     Dates: start: 20080513, end: 20080513

REACTIONS (3)
  - ANXIETY [None]
  - FEELING JITTERY [None]
  - NAUSEA [None]
